FAERS Safety Report 5226345-3 (Version None)
Quarter: 2007Q1

REPORT INFORMATION
  Report Type: 
  Country: None (occurrence: None)
  Receive Date: 20070201
  Receipt Date: 20070126
  Transmission Date: 20070707
  Serious: Yes (Other)
  Sender: FDA-Public Use
  Company Number: FRWYE603725FEB04

PATIENT
  Sex: Male
  Weight: 52 kg

DRUGS (3)
  1. REFACTO [Suspect]
     Indication: FACTOR VIII DEFICIENCY
     Dosage: 2,000 IU PER INJECTION; ON DEMAND THERAPY
     Route: 042
     Dates: start: 20020101, end: 20040215
  2. REFACTO [Suspect]
     Route: 042
     Dates: start: 20040216, end: 20050201
  3. REFACTO [Suspect]
     Route: 042
     Dates: start: 20050201

REACTIONS (3)
  - ANTI FACTOR VIII ANTIBODY POSITIVE [None]
  - COAGULATION FACTOR VIII LEVEL DECREASED [None]
  - MUSCLE HAEMORRHAGE [None]
